FAERS Safety Report 14574228 (Version 1)
Quarter: 2018Q1

REPORT INFORMATION
  Report Type: Report from Study
  Country: US (occurrence: US)
  Receive Date: 20180226
  Receipt Date: 20180226
  Transmission Date: 20180509
  Serious: Yes (Death, Hospitalization)
  Sender: FDA-Public Use
  Company Number: US-ACTELION-A-US2017-147852

PATIENT
  Age: 61 Year
  Sex: Female
  Weight: 91.61 kg

DRUGS (5)
  1. ADCIRCA [Concomitant]
     Active Substance: TADALAFIL
  2. DILTIAZEM. [Concomitant]
     Active Substance: DILTIAZEM
  3. TRACLEER [Concomitant]
     Active Substance: BOSENTAN
     Indication: PULMONARY ARTERIAL HYPERTENSION
     Route: 048
  4. VELETRI [Suspect]
     Active Substance: EPOPROSTENOL
     Indication: PULMONARY ARTERIAL HYPERTENSION
     Dosage: 41.05 NG/KG, PER MIN
     Route: 042
     Dates: start: 20140929
  5. TRACLEER [Concomitant]
     Active Substance: BOSENTAN
     Indication: PULMONARY ARTERIAL HYPERTENSION
     Route: 048

REACTIONS (17)
  - Pulmonary arterial hypertension [Unknown]
  - Oedema [Unknown]
  - Device dislocation [Unknown]
  - Fluid overload [Unknown]
  - Palpitations [Unknown]
  - Rash [Unknown]
  - Pain in extremity [Unknown]
  - Catheter site cellulitis [Unknown]
  - Pain in jaw [Unknown]
  - Death [Fatal]
  - Dyspnoea exertional [Unknown]
  - Device related infection [Unknown]
  - Dyspnoea [Unknown]
  - Condition aggravated [Unknown]
  - Malaise [Unknown]
  - Drug dose omission [Unknown]
  - Diarrhoea [Unknown]

NARRATIVE: CASE EVENT DATE: 20180209
